FAERS Safety Report 24886888 (Version 1)
Quarter: 2025Q1

REPORT INFORMATION
  Report Type: Report from Study
  Country: US (occurrence: US)
  Receive Date: 20250127
  Receipt Date: 20250127
  Transmission Date: 20250408
  Serious: Yes (Other)
  Sender: ABBVIE
  Company Number: US-ABBVIE-6101143

PATIENT
  Sex: Female

DRUGS (1)
  1. QULIPTA [Suspect]
     Active Substance: ATOGEPANT
     Indication: Product used for unknown indication
     Route: 048
     Dates: start: 20240101

REACTIONS (5)
  - Seizure [Unknown]
  - Impaired driving ability [Unknown]
  - Brain neoplasm [Unknown]
  - Lung neoplasm [Unknown]
  - Deafness unilateral [Unknown]
